FAERS Safety Report 5764669-1 (Version None)
Quarter: 2008Q2

REPORT INFORMATION
  Report Type: 
  Country: None (occurrence: None)
  Receive Date: 20080611
  Receipt Date: 20080603
  Transmission Date: 20081010
  Serious: Yes (Other)
  Sender: FDA-Public Use
  Company Number: CHNY2008DE02202

PATIENT
  Age: 85 Year

DRUGS (1)
  1. VOLTAREN [Suspect]
     Route: 061

REACTIONS (2)
  - BLOOD CREATININE INCREASED [None]
  - RENAL DISORDER [None]
